FAERS Safety Report 25999874 (Version 1)
Quarter: 2025Q4

REPORT INFORMATION
  Report Type: Spontaneous
  Country: CA (occurrence: CA)
  Receive Date: 20251105
  Receipt Date: 20251105
  Transmission Date: 20260118
  Serious: Yes (Life-Threatening, Hospitalization)
  Sender: MYLAN
  Company Number: CA-MYLANLABS-2025M1093332

PATIENT
  Age: 61 Year
  Sex: Female

DRUGS (12)
  1. EPINEPHRINE [Suspect]
     Active Substance: EPINEPHRINE
     Indication: Anaphylactic reaction
     Dosage: 0.5 MILLIGRAM, 1:1000
  2. EPINEPHRINE [Suspect]
     Active Substance: EPINEPHRINE
     Dosage: 0.5 MILLIGRAM, 1:1000
     Route: 030
  3. EPINEPHRINE [Suspect]
     Active Substance: EPINEPHRINE
     Dosage: 0.5 MILLIGRAM, 1:1000
     Route: 030
  4. EPINEPHRINE [Suspect]
     Active Substance: EPINEPHRINE
     Dosage: 0.5 MILLIGRAM, 1:1000
  5. METHYLPREDNISOLONE [Concomitant]
     Active Substance: METHYLPREDNISOLONE
     Indication: Anaphylactic reaction
     Dosage: 40 MILLIGRAM
  6. METHYLPREDNISOLONE [Concomitant]
     Active Substance: METHYLPREDNISOLONE
     Dosage: 40 MILLIGRAM
     Route: 042
  7. METHYLPREDNISOLONE [Concomitant]
     Active Substance: METHYLPREDNISOLONE
     Dosage: 40 MILLIGRAM
     Route: 042
  8. METHYLPREDNISOLONE [Concomitant]
     Active Substance: METHYLPREDNISOLONE
     Dosage: 40 MILLIGRAM
  9. DIPHENHYDRAMINE [Concomitant]
     Active Substance: DIPHENHYDRAMINE
     Indication: Anaphylactic reaction
     Dosage: 50 MILLIGRAM
  10. DIPHENHYDRAMINE [Concomitant]
     Active Substance: DIPHENHYDRAMINE
     Dosage: 50 MILLIGRAM
     Route: 042
  11. DIPHENHYDRAMINE [Concomitant]
     Active Substance: DIPHENHYDRAMINE
     Dosage: 50 MILLIGRAM
     Route: 042
  12. DIPHENHYDRAMINE [Concomitant]
     Active Substance: DIPHENHYDRAMINE
     Dosage: 50 MILLIGRAM

REACTIONS (4)
  - Vasospasm [Recovering/Resolving]
  - Myocardial infarction [Recovering/Resolving]
  - Hypertensive emergency [Recovering/Resolving]
  - Pulmonary oedema [Recovering/Resolving]
